FAERS Safety Report 4718484-8 (Version None)
Quarter: 2005Q3

REPORT INFORMATION
  Report Type: 
  Country: None (occurrence: None)
  Receive Date: 20050720
  Receipt Date: 20050414
  Transmission Date: 20060218
  Serious: No
  Sender: FDA-Public Use
  Company Number: DE-MERCK-0504DEU00107

PATIENT
  Age: 79 Year
  Sex: Male

DRUGS (8)
  1. VYTORIN [Suspect]
     Indication: HYPERCHOLESTEROLAEMIA
     Route: 048
  2. VYTORIN [Suspect]
     Route: 048
  3. HYDROCHLOROTHIAZIDE AND RAMIPRIL [Concomitant]
     Route: 048
  4. TORSEMIDE [Concomitant]
     Route: 048
  5. AMLODIPINE BESYLATE [Concomitant]
     Route: 048
  6. ASPIRIN [Concomitant]
     Route: 048
  7. RAMIPRIL [Concomitant]
     Route: 048
  8. BISOPROLOL [Concomitant]
     Route: 048

REACTIONS (3)
  - ANGINA PECTORIS [None]
  - MYALGIA [None]
  - MYOPATHY [None]
